FAERS Safety Report 13001472 (Version 1)
Quarter: 2016Q4

REPORT INFORMATION
  Report Type: Report from Study
  Country: US (occurrence: US)
  Receive Date: 20161206
  Receipt Date: 20161206
  Transmission Date: 20170207
  Serious: Yes (Other)
  Sender: FDA-Public Use
  Company Number: US-MALLINCKRODT-T201605032

PATIENT
  Age: 47 Year
  Sex: Female

DRUGS (2)
  1. REPOSITORY CORTICOTROPIN INJECTION [Suspect]
     Active Substance: CORTICOTROPIN
     Indication: SARCOIDOSIS
     Dosage: 80U/1ML TWICE WEEKLY, ?MON/THURS? AND ?TUES/FRI^
     Route: 030
     Dates: start: 2016
  2. REPOSITORY CORTICOTROPIN INJECTION [Suspect]
     Active Substance: CORTICOTROPIN
     Dosage: 80U/1ML TWICE WEEKLY, ?MON/THURS? AND ?TUES/FRI^
     Route: 030
     Dates: start: 20160229, end: 2016

REACTIONS (3)
  - Bone pain [Not Recovered/Not Resolved]
  - Kidney infection [Recovered/Resolved]
  - Malaise [Not Recovered/Not Resolved]

NARRATIVE: CASE EVENT DATE: 2016
